FAERS Safety Report 25802880 (Version 2)
Quarter: 2025Q3

REPORT INFORMATION
  Report Type: Report from Study
  Country: CN (occurrence: CN)
  Receive Date: 20250915
  Receipt Date: 20250929
  Transmission Date: 20251021
  Serious: Yes (Other)
  Sender: UCB
  Company Number: CN-NEUROGEN (ZHUHAI) PHARMA CO., LTD.-2025NG05149

PATIENT
  Age: 49 Year
  Sex: Male

DRUGS (7)
  1. VIMPAT [Suspect]
     Active Substance: LACOSAMIDE
     Indication: Generalised tonic-clonic seizure
  2. VIMPAT [Suspect]
     Active Substance: LACOSAMIDE
  3. VIMPAT [Suspect]
     Active Substance: LACOSAMIDE
  4. VALPROATE SODIUM [Concomitant]
     Active Substance: VALPROATE SODIUM
     Indication: Generalised tonic-clonic seizure
     Route: 048
  5. VALPROATE SODIUM [Concomitant]
     Active Substance: VALPROATE SODIUM
     Route: 048
  6. LAMOTRIGINE [Concomitant]
     Active Substance: LAMOTRIGINE
     Indication: Generalised tonic-clonic seizure
     Route: 048
  7. LAMOTRIGINE [Concomitant]
     Active Substance: LAMOTRIGINE
     Route: 048

REACTIONS (1)
  - Epilepsy [Recovering/Resolving]
